FAERS Safety Report 7537382-8 (Version None)
Quarter: 2011Q2

REPORT INFORMATION
  Report Type: 
  Country: None (occurrence: None)
  Receive Date: 20110609
  Receipt Date: 20110603
  Transmission Date: 20111010
  Serious: No
  Sender: FDA-Public Use
  Company Number: US-PFIZER INC-2011121144

PATIENT
  Sex: Female

DRUGS (2)
  1. DOXYCYCLINE HYCLATE [Suspect]
     Dosage: 100 MG, UNK
     Route: 048
     Dates: start: 20110524
  2. CLARITIN [Suspect]
     Indication: HYPERSENSITIVITY
     Dosage: 10 MG, 1X/DAY, EVERY EVENING
     Route: 048
     Dates: start: 20110513, end: 20110525

REACTIONS (3)
  - RASH [None]
  - VOMITING [None]
  - SWELLING FACE [None]
